FAERS Safety Report 5541611-X (Version None)
Quarter: 2007Q4

REPORT INFORMATION
  Report Type: 
  Country: None (occurrence: None)
  Receive Date: 20071205
  Receipt Date: 20071205
  Transmission Date: 20080405
  Serious: Yes (Hospitalization)
  Sender: FDA-Public Use
  Company Number: None

PATIENT
  Sex: Male
  Weight: 132 kg

DRUGS (9)
  1. CYCLOPHOSPHAMIDE [Suspect]
     Dosage: 2500 MG
     Dates: start: 20071024
  2. CYTARABINE [Suspect]
     Dosage: 40 MG
  3. DEXAMETHASONE TAB [Suspect]
     Dosage: 120 MG
  4. DOXORUBICIN HYDROCHLORIDE [Suspect]
     Dosage: 124 MG
  5. G-CSF (FILGRASTIM, AMGEN) [Suspect]
     Dosage: 7260 MCG
  6. LEUCOVORIN CALCIUM [Suspect]
     Dosage: 2155 MG
  7. METHOTREXATE [Suspect]
     Dosage: 3675 MG
  8. RITUXIMAB (MOAB C2B8 ANTI CD20, CHIMERIC) [Suspect]
     Dosage: 900 MG
  9. VINCRISTINE SULFATE [Suspect]
     Dosage: 2 MG

REACTIONS (9)
  - BACTERIAL INFECTION [None]
  - BLOOD CULTURE POSITIVE [None]
  - CATHETER RELATED INFECTION [None]
  - ENTEROCOCCAL INFECTION [None]
  - FATIGUE [None]
  - HYPERHIDROSIS [None]
  - MUCOSAL INFLAMMATION [None]
  - PAIN [None]
  - PYREXIA [None]
